FAERS Safety Report 7123695-0 (Version None)
Quarter: 2010Q4

REPORT INFORMATION
  Report Type: 
  Country: None (occurrence: None)
  Receive Date: 20101125
  Receipt Date: 20101111
  Transmission Date: 20110411
  Serious: Yes (Other)
  Sender: FDA-Public Use
  Company Number: PHHY2010BR77016

PATIENT
  Age: 39 Year
  Sex: Male

DRUGS (5)
  1. EXJADE [Suspect]
     Dosage: 30 MG/KG/D
     Route: 048
  2. UNASIM [Concomitant]
  3. AZITHROMYCIN [Concomitant]
  4. DOPAMINE [Concomitant]
     Dosage: 5UG/KG
  5. RED BLOOD CELLS, CONCENTRATED [Concomitant]

REACTIONS (13)
  - ABDOMINAL DISTENSION [None]
  - ANURIA [None]
  - ASCITES [None]
  - ASTHENIA [None]
  - BLOOD CREATININE INCREASED [None]
  - BLOOD POTASSIUM INCREASED [None]
  - BLOOD UREA INCREASED [None]
  - DYSPNOEA [None]
  - OLIGURIA [None]
  - PERITONEAL DIALYSIS [None]
  - PLEURAL EFFUSION [None]
  - PNEUMONIA [None]
  - TRANSAMINASES INCREASED [None]
